FAERS Safety Report 7432382-0 (Version None)
Quarter: 2011Q2

REPORT INFORMATION
  Report Type: 
  Country: None (occurrence: None)
  Receive Date: 20110422
  Receipt Date: 20110412
  Transmission Date: 20111010
  Serious: Yes (Hospitalization)
  Sender: FDA-Public Use
  Company Number: PHHY2011ZA32555

PATIENT
  Sex: Female

DRUGS (1)
  1. EXJADE [Suspect]
     Dosage: 2250 MG, UNK

REACTIONS (4)
  - HAEMOGLOBIN INCREASED [None]
  - SERUM FERRITIN INCREASED [None]
  - MALAISE [None]
  - BONE MARROW FAILURE [None]
